FAERS Safety Report 15541491 (Version 1)
Quarter: 2018Q4

REPORT INFORMATION
  Report Type: Spontaneous
  Country: US (occurrence: US)
  Receive Date: 20181023
  Receipt Date: 20181023
  Transmission Date: 20190205
  Serious: Yes (Other)
  Sender: FDA-Public Use
  Company Number: US-SA-2018SA291343

PATIENT
  Age: 44 Year
  Sex: Female
  Weight: 125 kg

DRUGS (14)
  1. TAXOTERE [Suspect]
     Active Substance: DOCETAXEL
     Indication: BREAST CANCER FEMALE
     Dosage: 180 MG, Q3W
     Route: 042
     Dates: start: 20090417, end: 20090417
  2. TAXOTERE [Suspect]
     Active Substance: DOCETAXEL
     Dosage: 180 MG, Q3W
     Route: 042
     Dates: start: 20090731, end: 20090731
  3. HERCEPTIN [Concomitant]
     Active Substance: TRASTUZUMAB
  4. GLYBURIDE. [Concomitant]
     Active Substance: GLYBURIDE
     Dosage: UNK
     Dates: start: 2006
  5. GLUCOPHAGE [Concomitant]
     Active Substance: METFORMIN HYDROCHLORIDE
     Dosage: UNK
     Dates: start: 2006
  6. NOVOLIN [Concomitant]
     Active Substance: INSULIN HUMAN
     Dosage: UNK
     Dates: start: 2006
  7. GLUCOTROL [Concomitant]
     Active Substance: GLIPIZIDE
     Dosage: UNK
     Dates: start: 2006
  8. ZOCOR [Concomitant]
     Active Substance: SIMVASTATIN
     Dosage: UNK
     Dates: start: 2006
  9. PHENERGAN [PROMETHAZINE] [Concomitant]
  10. CELEXA [CITALOPRAM HYDROBROMIDE] [Concomitant]
     Dosage: UNK
     Dates: start: 2006
  11. PRINIVIL [Concomitant]
     Active Substance: LISINOPRIL
     Dosage: UNK
     Dates: start: 2006
  12. DECADRON [DEXAMETHASONE] [Concomitant]
  13. PARAPLATIN [Concomitant]
     Active Substance: CARBOPLATIN
  14. AMITRIPTYLINE [Concomitant]
     Active Substance: AMITRIPTYLINE
     Dosage: UNK
     Dates: start: 2006

REACTIONS (2)
  - Alopecia [Recovering/Resolving]
  - Psychological trauma [Unknown]

NARRATIVE: CASE EVENT DATE: 20091017
